FAERS Safety Report 6902044-4 (Version None)
Quarter: 2010Q3

REPORT INFORMATION
  Report Type: 
  Country: None (occurrence: None)
  Receive Date: 20100803
  Receipt Date: 20080414
  Transmission Date: 20110219
  Serious: Yes (Hospitalization, Other)
  Sender: FDA-Public Use
  Company Number: US-PFIZER INC-2008033564

PATIENT
  Sex: Female
  Weight: 52.2 kg

DRUGS (4)
  1. LYRICA [Suspect]
     Indication: FIBROMYALGIA
     Dates: start: 20080301
  2. LYRICA [Suspect]
     Indication: NEUROPATHY PERIPHERAL
  3. PAXIL [Concomitant]
  4. VITAMIN B-12 [Concomitant]

REACTIONS (6)
  - ASTHENIA [None]
  - DRUG INEFFECTIVE [None]
  - FATIGUE [None]
  - LETHARGY [None]
  - MALAISE [None]
  - TREMOR [None]
